FAERS Safety Report 9015968 (Version 1)
Quarter: 2013Q1

REPORT INFORMATION
  Report Type: Spontaneous
  Country: GB (occurrence: GB)
  Receive Date: 20130116
  Receipt Date: 20130116
  Transmission Date: 20140127
  Serious: Yes (Other)
  Sender: FDA-Public Use
  Company Number: GB-TEVA-380288ISR

PATIENT
  Age: 24 Year
  Sex: Female
  Weight: 70 kg

DRUGS (1)
  1. LEVONELLE-2 [Suspect]
     Indication: CONTRACEPTION
     Route: 048
     Dates: start: 20121226, end: 20121226

REACTIONS (1)
  - Influenza [Not Recovered/Not Resolved]
